FAERS Safety Report 22522758 (Version 4)
Quarter: 2024Q2

REPORT INFORMATION
  Report Type: Spontaneous
  Country: US (occurrence: US)
  Receive Date: 20230605
  Receipt Date: 20240517
  Transmission Date: 20240716
  Serious: No
  Sender: FDA-Public Use
  Company Number: US-002147023-NVSC2023US127874

PATIENT
  Age: 65 Year
  Sex: Male

DRUGS (1)
  1. PLUVICTO [Suspect]
     Active Substance: LUTETIUM LU-177 VIPIVOTIDE TETRAXETAN
     Indication: Product used for unknown indication
     Dosage: 160 MCI
     Route: 042
     Dates: start: 20230419, end: 20231027

REACTIONS (4)
  - Ill-defined disorder [Not Recovered/Not Resolved]
  - Asthenia [Unknown]
  - Prostatic specific antigen increased [Unknown]
  - Fatigue [Unknown]

NARRATIVE: CASE EVENT DATE: 20231027
